FAERS Safety Report 6691953-X (Version None)
Quarter: 2010Q2

REPORT INFORMATION
  Report Type: 
  Country: None (occurrence: None)
  Receive Date: 20100422
  Receipt Date: 20090615
  Transmission Date: 20101027
  Serious: No
  Sender: FDA-Public Use
  Company Number: US-ASTRAZENECA-2009UW15233

PATIENT
  Age: 73 Year
  Sex: Female

DRUGS (4)
  1. METOPROLOL TARTRATE [Suspect]
     Route: 048
     Dates: start: 20071010, end: 20071110
  2. HYDROCHLOROTHIAZIDE [Concomitant]
  3. LIPITOR [Concomitant]
  4. ALTACE [Concomitant]

REACTIONS (2)
  - ABNORMAL DREAMS [None]
  - ILL-DEFINED DISORDER [None]
